FAERS Safety Report 9901720 (Version 2)
Quarter: 2014Q1

REPORT INFORMATION
  Report Type: Spontaneous
  Country: US (occurrence: US)
  Receive Date: 20140217
  Receipt Date: 20140219
  Transmission Date: 20141002
  Serious: Yes (Other)
  Sender: FDA-Public Use
  Company Number: CHPA2014US002611

PATIENT
  Age: 74 Year
  Sex: Female

DRUGS (3)
  1. EX-LAX MAX STR LAX PILLS SENNA [Suspect]
     Indication: CONSTIPATION
     Dosage: 3 OR 4 PILLS AT ONCE 2 OR 3 TIMES A WEEK
     Route: 048
  2. EX-LAX MAX STR LAX PILLS SENNA [Suspect]
     Indication: INTESTINAL OBSTRUCTION
  3. EX-LAX MAX STR LAX PILLS SENNA [Suspect]
     Indication: OFF LABEL USE

REACTIONS (3)
  - Drug dependence [Unknown]
  - Incorrect dosage administered [Unknown]
  - Therapeutic response decreased [Unknown]
